FAERS Safety Report 8049334-2 (Version None)
Quarter: 2011Q4

REPORT INFORMATION
  Report Type: 
  Country: None (occurrence: None)
  Receive Date: 20111209
  Receipt Date: 20111004
  Transmission Date: 20120403
  Serious: No
  Sender: FDA-Public Use
  Company Number: TH-2011-00424

PATIENT
  Sex: Male

DRUGS (1)
  1. EGRIFTA [Suspect]
     Indication: PRODUCT USED FOR UNKNOWN INDICATION
     Dates: end: 20110401

REACTIONS (4)
  - HEART RATE INCREASED [None]
  - HYPERTENSION [None]
  - CHEST DISCOMFORT [None]
  - CHEST PAIN [None]
